FAERS Safety Report 7582551-4 (Version None)
Quarter: 2011Q2

REPORT INFORMATION
  Report Type: 
  Country: None (occurrence: None)
  Receive Date: 20110527
  Receipt Date: 20101201
  Transmission Date: 20111010
  Serious: Yes (Other)
  Sender: FDA-Public Use
  Company Number: US201012001040

PATIENT
  Age: 81 Year
  Sex: Female
  Weight: 102.5 kg

DRUGS (2)
  1. GLIPIZIDE [Concomitant]
  2. BYETTA [Suspect]
     Indication: DIABETES MELLITUS
     Dosage: 5 UG,SUBCUTANEOUS, 10 UG,SUBCUTANEOUS
     Route: 058

REACTIONS (2)
  - RENAL IMPAIRMENT [None]
  - WEIGHT INCREASED [None]
